FAERS Safety Report 15448500 (Version 1)
Quarter: 2018Q3

REPORT INFORMATION
  Report Type: Spontaneous
  Country: US (occurrence: US)
  Receive Date: 20180929
  Receipt Date: 20180929
  Transmission Date: 20181010
  Serious: No
  Sender: FDA-Public Use
  Company Number: US-TEVA-2018-US-958497

PATIENT
  Sex: Female

DRUGS (1)
  1. CARTIA XT [Suspect]
     Active Substance: DILTIAZEM HYDROCHLORIDE
     Route: 065

REACTIONS (5)
  - Product odour abnormal [Unknown]
  - Dyspepsia [Unknown]
  - Malaise [Unknown]
  - Abdominal discomfort [Unknown]
  - Product substitution issue [Unknown]
